FAERS Safety Report 5156810-9 (Version None)
Quarter: 2006Q4

REPORT INFORMATION
  Report Type: 
  Country: None (occurrence: None)
  Receive Date: 20061115
  Receipt Date: 20061102
  Transmission Date: 20070319
  Serious: Yes (Hospitalization)
  Sender: FDA-Public Use
  Company Number: 2006135039

PATIENT
  Age: 10 Year
  Sex: Female

DRUGS (1)
  1. GENOTROPIN [Suspect]
     Indication: HYPOPITUITARISM
     Dosage: 0.7 MG (12 MG), SUBCUTANEOUS
     Route: 058
     Dates: start: 20040618

REACTIONS (3)
  - CEREBRAL CYST [None]
  - CONVULSION [None]
  - POST PROCEDURAL COMPLICATION [None]
